FAERS Safety Report 13394977 (Version 1)
Quarter: 2017Q2

REPORT INFORMATION
  Report Type: Spontaneous
  Country: US (occurrence: US)
  Receive Date: 20170403
  Receipt Date: 20170403
  Transmission Date: 20170830
  Serious: Yes (Other)
  Sender: FDA-Public Use
  Company Number: US-STRIDES ARCOLAB LIMITED-2016SP016638

PATIENT

DRUGS (1)
  1. IBUPROFEN. [Suspect]
     Active Substance: IBUPROFEN
     Indication: MENSTRUAL DISCOMFORT
     Dosage: 200 MG, UNK
     Route: 048

REACTIONS (5)
  - Rash [Unknown]
  - Drug hypersensitivity [Unknown]
  - Lip swelling [Unknown]
  - Macule [Unknown]
  - Papule [Unknown]
